FAERS Safety Report 5355860-7 (Version None)
Quarter: 2007Q2

REPORT INFORMATION
  Report Type: 
  Country: None (occurrence: None)
  Receive Date: 20070530
  Receipt Date: 20070307
  Transmission Date: 20071010
  Serious: Yes (Hospitalization, Other)
  Sender: FDA-Public Use
  Company Number: US200610000409

PATIENT
  Age: 32 Year
  Sex: Female
  Weight: 170.5 kg

DRUGS (3)
  1. ZYPREXA [Suspect]
     Dosage: 10 MG
     Dates: start: 20021001, end: 20050501
  2. PAXIL [Concomitant]
  3. EFFEXOR [Concomitant]

REACTIONS (7)
  - BLOOD CHOLESTEROL INCREASED [None]
  - CHEST PAIN [None]
  - DIABETES MELLITUS [None]
  - DIABETIC COMA [None]
  - DIABETIC KETOACIDOSIS [None]
  - HYPERGLYCAEMIA [None]
  - PANCREATITIS [None]
